APPROVED DRUG PRODUCT: DEXTROAMPHETAMINE SULFATE
Active Ingredient: DEXTROAMPHETAMINE SULFATE
Strength: 10MG
Dosage Form/Route: CAPSULE, EXTENDED RELEASE;ORAL
Application: A205673 | Product #002
Applicant: STRIDES PHARMA INTERNATIONAL AG
Approved: Oct 31, 2017 | RLD: No | RS: No | Type: DISCN